FAERS Safety Report 19427453 (Version 1)
Quarter: 2021Q2

REPORT INFORMATION
  Report Type: Spontaneous
  Country: US (occurrence: US)
  Receive Date: 20210616
  Receipt Date: 20210616
  Transmission Date: 20210717
  Serious: Yes (Other)
  Sender: FDA-Public Use
  Company Number: None

PATIENT
  Age: 38 Year
  Sex: Male

DRUGS (1)
  1. MAVYRET [Suspect]
     Active Substance: GLECAPREVIR\PIBRENTASVIR
     Indication: HEPATITIS C
     Dosage: OTHER DOSE:100?400MG; DAILY PO?
     Route: 048
     Dates: start: 20210612

REACTIONS (4)
  - Coordination abnormal [None]
  - Nausea [None]
  - Feeling abnormal [None]
  - Vision blurred [None]

NARRATIVE: CASE EVENT DATE: 20210616
